FAERS Safety Report 19932011 (Version 1)
Quarter: 2021Q4

REPORT INFORMATION
  Report Type: Spontaneous
  Country: CN (occurrence: CN)
  Receive Date: 20211007
  Receipt Date: 20211007
  Transmission Date: 20220303
  Serious: Yes (Life-Threatening, Hospitalization, Other)
  Sender: FDA-Public Use
  Company Number: CN-BAXTER-2021BAX026409

PATIENT
  Age: 52 Year
  Sex: Female
  Weight: 45 kg

DRUGS (5)
  1. CYCLOPHOSPHAMIDE [Suspect]
     Active Substance: CYCLOPHOSPHAMIDE
     Indication: Breast cancer female
     Dosage: CYCLOPHOSPHAMIDE 0.8G  + 0.9% NS 100ML; EC REGIMEN
     Route: 041
     Dates: start: 20190820, end: 20190820
  2. CYCLOPHOSPHAMIDE [Suspect]
     Active Substance: CYCLOPHOSPHAMIDE
     Indication: Endometrial cancer
     Dosage: TC CHEMOTHERAPY FOR 3 TIMES
     Route: 065
  3. SODIUM CHLORIDE [Suspect]
     Active Substance: SODIUM CHLORIDE
     Indication: Medication dilution
     Dosage: 0.9% NS100ML + CYCLOPHOSPHAMIDE 0.8G; EC REGIMEN
     Route: 041
     Dates: start: 20190820, end: 20190820
  4. SODIUM CHLORIDE [Suspect]
     Active Substance: SODIUM CHLORIDE
     Dosage: 0.9% NS 250ML + EPIRUBICIN 130MG; EC REGIMEN
     Route: 041
     Dates: start: 20190820, end: 20190820
  5. EPIRUBICIN [Suspect]
     Active Substance: EPIRUBICIN
     Indication: Breast cancer female
     Dosage: EPIRUBICIN 130MG + 0.9% NS 250ML; EC REGIMEN
     Route: 041
     Dates: start: 20190820, end: 20190820

REACTIONS (6)
  - Vaginal haemorrhage [Recovered/Resolved]
  - Myelosuppression [Recovering/Resolving]
  - Hepatic function abnormal [Recovering/Resolving]
  - Septic shock [Recovering/Resolving]
  - Thrombocytopenia [Unknown]
  - Hepatic function abnormal [Recovered/Resolved]

NARRATIVE: CASE EVENT DATE: 20190827
